FAERS Safety Report 6092595-X (Version None)
Quarter: 2009Q1

REPORT INFORMATION
  Report Type: 
  Country: None (occurrence: None)
  Receive Date: 20090225
  Receipt Date: 20080618
  Transmission Date: 20090719
  Serious: No
  Sender: FDA-Public Use
  Company Number: US-BRISTOL-MYERS SQUIBB COMPANY-14233209

PATIENT
  Age: 50 Year
  Sex: Female
  Weight: 75 kg

DRUGS (7)
  1. KENALOG [Suspect]
     Indication: INTERVERTEBRAL DISC DEGENERATION
     Dates: start: 20080612
  2. KENALOG [Suspect]
     Indication: SCIATICA
     Dates: start: 20080612
  3. TOPROL-XL [Concomitant]
  4. BENTYL [Concomitant]
  5. CRESTOR [Concomitant]
  6. AGRYLIN [Concomitant]
  7. XANAX [Concomitant]

REACTIONS (5)
  - ANXIETY [None]
  - DIARRHOEA [None]
  - INSOMNIA [None]
  - NAUSEA [None]
  - NERVOUSNESS [None]
